FAERS Safety Report 5575773-5 (Version None)
Quarter: 2007Q4

REPORT INFORMATION
  Report Type: 
  Country: None (occurrence: None)
  Receive Date: 20071221
  Receipt Date: 20071205
  Transmission Date: 20080405
  Serious: Yes (Hospitalization)
  Sender: FDA-Public Use
  Company Number: 8015042

PATIENT
  Age: 81 Year
  Sex: Female

DRUGS (2)
  1. KEPPRA [Suspect]
     Indication: EPILEPSY
     Dosage: 3000 MG/D PO
     Route: 048
     Dates: start: 20060206, end: 20060213
  2. RIVOTRIL [Concomitant]

REACTIONS (5)
  - HYPOXIA [None]
  - MALABSORPTION [None]
  - PROTHROMBIN TIME RATIO INCREASED [None]
  - STATUS EPILEPTICUS [None]
  - THERAPEUTIC RESPONSE DECREASED [None]
